FAERS Safety Report 8258878-X (Version None)
Quarter: 2012Q2

REPORT INFORMATION
  Report Type: 
  Country: None (occurrence: None)
  Receive Date: 20120404
  Receipt Date: 20120326
  Transmission Date: 20120825
  Serious: Yes (Other)
  Sender: FDA-Public Use
  Company Number: US-BAYER-2012-029672

PATIENT
  Age: 35 Year
  Sex: Female
  Weight: 70 kg

DRUGS (4)
  1. ALKA-SELTZER PLUS SEVERE SINUS CONGESTION + COUGH LIQUID GELS [Suspect]
     Indication: NASOPHARYNGITIS
     Dosage: 1 DF, QD
     Route: 048
     Dates: start: 20120324, end: 20120324
  2. IRON SUPPLEMENT [Concomitant]
  3. STOOL SOFTENER [Concomitant]
  4. ONE A DAY [Concomitant]

REACTIONS (3)
  - ABDOMINAL PAIN UPPER [None]
  - CHOKING [None]
  - PAIN [None]
